FAERS Safety Report 10395975 (Version 1)
Quarter: 2014Q3

REPORT INFORMATION
  Report Type: Spontaneous
  Country: US (occurrence: None)
  Receive Date: 20140815
  Receipt Date: 20140815
  Transmission Date: 20150326
  Serious: Yes (Life-Threatening, Disabling)
  Sender: FDA-Public Use
  Company Number: None

PATIENT
  Age: 77 Year
  Sex: Female
  Weight: 58.97 kg

DRUGS (1)
  1. ZOLEDRONIC ACID [Suspect]
     Active Substance: ZOLEDRONIC ACID
     Indication: OSTEOPOROSIS
     Dosage: DON^T KNOW ONCE A YEAR INTO A VEIN
     Route: 042
     Dates: start: 20140804, end: 20140804

REACTIONS (9)
  - Chills [None]
  - Headache [None]
  - Myalgia [None]
  - Mobility decreased [None]
  - Gait disturbance [None]
  - Nausea [None]
  - Joint swelling [None]
  - Pyrexia [None]
  - Arthralgia [None]

NARRATIVE: CASE EVENT DATE: 20140804
